FAERS Safety Report 11451270 (Version 2)
Quarter: 2016Q1

REPORT INFORMATION
  Report Type: Spontaneous
  Country: US (occurrence: US)
  Receive Date: 20150903
  Receipt Date: 20160113
  Transmission Date: 20160525
  Serious: No
  Sender: FDA-Public Use
  Company Number: US-009507513-1509USA000359

PATIENT
  Age: 67 Year
  Sex: Male

DRUGS (1)
  1. ASMANEX [Suspect]
     Active Substance: MOMETASONE FUROATE
     Indication: CHRONIC OBSTRUCTIVE PULMONARY DISEASE
     Dosage: UNK
     Route: 055
     Dates: end: 20150831

REACTIONS (3)
  - Musculoskeletal stiffness [Recovering/Resolving]
  - Myalgia [Recovering/Resolving]
  - Product use issue [Unknown]

NARRATIVE: CASE EVENT DATE: 20150820
